FAERS Safety Report 8294227-9 (Version None)
Quarter: 2012Q2

REPORT INFORMATION
  Report Type: 
  Country: None (occurrence: None)
  Receive Date: 20120418
  Receipt Date: 20120416
  Transmission Date: 20120825
  Serious: No
  Sender: FDA-Public Use
  Company Number: PHHY2012MX025890

PATIENT
  Sex: Male

DRUGS (1)
  1. TRILEPTAL [Suspect]
     Indication: EPILEPSY
     Dosage: 1 DF, DAILY
     Route: 048
     Dates: start: 20120225

REACTIONS (3)
  - TONSILLAR INFLAMMATION [None]
  - ABDOMINAL PAIN UPPER [None]
  - VOMITING [None]
